FAERS Safety Report 18139758 (Version 1)
Quarter: 2020Q3

REPORT INFORMATION
  Report Type: Spontaneous
  Country: US (occurrence: US)
  Receive Date: 20200811
  Receipt Date: 20200811
  Transmission Date: 20201103
  Serious: Yes (Life-Threatening, Hospitalization)
  Sender: FDA-Public Use
  Company Number: None

PATIENT
  Age: 69 Year
  Sex: Male

DRUGS (1)
  1. LISINOPRIL (LISINOPRIL 40MG TAB) [Suspect]
     Active Substance: LISINOPRIL
     Route: 048
     Dates: start: 20200520

REACTIONS (7)
  - Supraventricular tachycardia [None]
  - COVID-19 [None]
  - Sinus tachycardia [None]
  - SARS-CoV-2 test negative [None]
  - Ventricular extrasystoles [None]
  - Angioedema [None]
  - Hypotension [None]

NARRATIVE: CASE EVENT DATE: 20200529
